FAERS Safety Report 7744829-0 (Version None)
Quarter: 2011Q3

REPORT INFORMATION
  Report Type: 
  Country: None (occurrence: None)
  Receive Date: 20110912
  Receipt Date: 20110902
  Transmission Date: 20111222
  Serious: Yes (Other)
  Sender: FDA-Public Use
  Company Number: AU-GILEAD-2011-0043016

PATIENT
  Sex: Female
  Weight: 55 kg

DRUGS (11)
  1. TRUVADA [Suspect]
     Indication: HIV INFECTION
     Route: 048
     Dates: start: 20081211
  2. RITONAVIR [Concomitant]
     Indication: HIV INFECTION
  3. LIPITOR [Concomitant]
     Indication: CORONARY ARTERY DISEASE
  4. EFFEXOR [Concomitant]
     Indication: DEPRESSION
  5. DARUNAVIR [Concomitant]
     Indication: HIV INFECTION
  6. ATENOLOL [Concomitant]
     Indication: CORONARY ARTERY DISEASE
  7. ATAZANAVIR [Suspect]
     Indication: HIV INFECTION
     Route: 048
     Dates: start: 20040120, end: 20101117
  8. EZETIMIBE [Concomitant]
     Indication: CORONARY ARTERY DISEASE
  9. MONODUR [Concomitant]
     Indication: CORONARY ARTERY DISEASE
  10. IKOREL [Concomitant]
     Indication: CORONARY ARTERY DISEASE
  11. PLAVIX [Concomitant]
     Indication: CORONARY ARTERY DISEASE

REACTIONS (1)
  - NEPHROLITHIASIS [None]
